FAERS Safety Report 25922707 (Version 1)
Quarter: 2025Q4

REPORT INFORMATION
  Report Type: Spontaneous
  Country: US (occurrence: US)
  Receive Date: 20251015
  Receipt Date: 20251015
  Transmission Date: 20260118
  Serious: No
  Sender: ORPHALAN
  Company Number: US-ORPHALAN-US-ORP-25-00138

PATIENT
  Sex: Male

DRUGS (3)
  1. CUVRIOR [Suspect]
     Active Substance: TRIENTINE TETRAHYDROCHLORIDE
     Indication: Hepato-lenticular degeneration
     Dosage: 900 MILLIGRAM, IN THE MORNING
     Route: 048
     Dates: start: 20250114
  2. CUVRIOR [Suspect]
     Active Substance: TRIENTINE TETRAHYDROCHLORIDE
     Dosage: 600 MILLIGRAM, IN THE EVENING
     Route: 048
     Dates: start: 20250114
  3. ZINC [Concomitant]
     Active Substance: ZINC
     Indication: Product used for unknown indication
     Dosage: UNK
     Route: 065

REACTIONS (1)
  - Product dose omission issue [Recovered/Resolved]
